FAERS Safety Report 9106931 (Version 2)
Quarter: 2013Q1

REPORT INFORMATION
  Report Type: Spontaneous
  Country: US (occurrence: US)
  Receive Date: 20130221
  Receipt Date: 20130328
  Transmission Date: 20140127
  Serious: No
  Sender: FDA-Public Use
  Company Number: US-B.I. PHARMACEUTICALS,INC./RIDGEFIELD-2013-BI-04733BP

PATIENT
  Sex: Male
  Weight: 109 kg

DRUGS (9)
  1. COMBIVENT [Suspect]
     Indication: ASTHMA
     Route: 055
     Dates: start: 2007
  2. COMBIVENT [Suspect]
     Indication: CHRONIC OBSTRUCTIVE PULMONARY DISEASE
  3. CYMBALTA [Concomitant]
     Dosage: 30 MG
     Dates: start: 20121219, end: 20130121
  4. DIVALPROEX SODIUM ER [Concomitant]
     Dosage: 1500 MG
     Dates: start: 20121119, end: 20121119
  5. LYRICA [Concomitant]
     Dosage: 225 MG
     Route: 048
     Dates: start: 20120410, end: 20130121
  6. OMEPRAZOLE [Concomitant]
     Dosage: 40 MG
     Route: 048
     Dates: start: 20120410, end: 20130121
  7. SIMVASTATIN [Concomitant]
     Dosage: 20 MG
     Route: 048
     Dates: start: 20120307, end: 20120918
  8. METFORMIN HCL [Concomitant]
     Dosage: 850 MG
     Route: 048
     Dates: start: 20101129, end: 20101129
  9. ZYRTEC -D ALLERGY [Concomitant]
     Route: 048

REACTIONS (1)
  - Medication error [Recovered/Resolved]
